FAERS Safety Report 24230371 (Version 1)
Quarter: 2024Q3

REPORT INFORMATION
  Report Type: Spontaneous
  Country: CH (occurrence: CH)
  Receive Date: 20240821
  Receipt Date: 20240821
  Transmission Date: 20241017
  Serious: Yes (Other)
  Sender: STRIDES
  Company Number: CH-STRIDES ARCOLAB LIMITED-2024SP010385

PATIENT
  Age: 4 Decade
  Sex: Female

DRUGS (10)
  1. PREDNISOLONE [Suspect]
     Active Substance: PREDNISOLONE
     Indication: Small fibre neuropathy
     Dosage: 1 MILLIGRAM/KILOGRAM, QD
     Route: 065
     Dates: start: 20190224
  2. PREDNISOLONE [Suspect]
     Active Substance: PREDNISOLONE
     Dosage: 20 MILLIGRAM, QD (MAINTENANCE DOSE)
     Route: 065
     Dates: start: 20200619
  3. CYCLOSPORINE [Suspect]
     Active Substance: CYCLOSPORINE
     Indication: Small fibre neuropathy
     Dosage: UNK
     Route: 065
  4. Immunoglobulin [Concomitant]
     Indication: Small fibre neuropathy
     Dosage: 1.5 GRAM PER MILLIGRAM (INFUSION)
     Route: 042
     Dates: start: 20190306, end: 201903
  5. Immunoglobulin [Concomitant]
     Dosage: 1 GRAM PER KILOGRAM, EVERY 4 WEEKS (INFUSION)
     Route: 042
     Dates: start: 201903, end: 20190604
  6. Immunoglobulin [Concomitant]
     Dosage: 1 GRAM PER KILOGRAM, EVERY 4 WEEKS
     Route: 058
     Dates: start: 20190604
  7. Immunoglobulin [Concomitant]
     Dosage: UNK (ADDED TO PREDNISONE THERAPY)
     Route: 058
  8. Immunoglobulin [Concomitant]
     Dosage: UNK
     Route: 058
     Dates: start: 2022, end: 2022
  9. METHYLPREDNISOLONE [Concomitant]
     Active Substance: METHYLPREDNISOLONE
     Indication: Small fibre neuropathy
     Dosage: 1 GRAM (PULSE)
     Route: 048
  10. RITUXIMAB [Concomitant]
     Active Substance: RITUXIMAB
     Indication: Small fibre neuropathy
     Dosage: 1000 MILLIGRAM
     Route: 065

REACTIONS (4)
  - Abortion spontaneous [Unknown]
  - Maternal exposure during pregnancy [Unknown]
  - Condition aggravated [Recovered/Resolved]
  - Off label use [Unknown]

NARRATIVE: CASE EVENT DATE: 20200101
